FAERS Safety Report 8886574 (Version 1)
Quarter: 2012Q4

REPORT INFORMATION
  Report Type: 
  Country: ES (occurrence: ES)
  Receive Date: 20121105
  Receipt Date: 20121105
  Transmission Date: 20130627
  Serious: Yes (Other)
  Sender: FDA-Public Use
  Company Number: ES-JNJFOC-20121016789

PATIENT
  Age: 30 Year
  Sex: Female

DRUGS (1)
  1. XEPLION [Suspect]
     Indication: SCHIZOPHRENIA
     Route: 030
     Dates: start: 20120301

REACTIONS (4)
  - Amenorrhoea [Not Recovered/Not Resolved]
  - Injection site inflammation [Not Recovered/Not Resolved]
  - Blood thyroid stimulating hormone increased [Not Recovered/Not Resolved]
  - Libido increased [Not Recovered/Not Resolved]
